FAERS Safety Report 25833423 (Version 2)
Quarter: 2025Q4

REPORT INFORMATION
  Report Type: Spontaneous
  Country: CN (occurrence: CN)
  Receive Date: 20250922
  Receipt Date: 20251103
  Transmission Date: 20260118
  Serious: Yes (Other)
  Sender: NOVARTIS
  Company Number: CN-002147023-NVSC2025CN142867

PATIENT

DRUGS (4)
  1. TRILEPTAL [Suspect]
     Active Substance: OXCARBAZEPINE
     Indication: Product used for unknown indication
     Dosage: 0.3 G, 50 TABLETS A BOX
     Route: 048
  2. TRILEPTAL [Suspect]
     Active Substance: OXCARBAZEPINE
     Dosage: 0.3 G, 50 TABLETS A BOX
     Route: 048
  3. TRILEPTAL [Suspect]
     Active Substance: OXCARBAZEPINE
     Dosage: 0.3 G, 50 TABLETS A BOX
     Route: 048
  4. TRILEPTAL [Suspect]
     Active Substance: OXCARBAZEPINE
     Dosage: 0.3 G, 50 TABLETS A BOX
     Route: 048

REACTIONS (4)
  - Seizure [Unknown]
  - Disease recurrence [Unknown]
  - Hypersensitivity [Unknown]
  - Skin mass [Unknown]

NARRATIVE: CASE EVENT DATE: 20250101
